FAERS Safety Report 4308028-7 (Version None)
Quarter: 2004Q1

REPORT INFORMATION
  Report Type: 
  Country: None (occurrence: None)
  Receive Date: 20040301
  Receipt Date: 20030325
  Transmission Date: 20041129
  Serious: No
  Sender: FDA-Public Use
  Company Number: US-BRISTOL-MYERS SQUIBB COMPANY-12222006

PATIENT
  Age: 85 Year
  Sex: Female
  Weight: 63 kg

DRUGS (6)
  1. GLUCOPHAGE [Suspect]
     Indication: DIABETES MELLITUS NON-INSULIN-DEPENDENT
     Route: 048
  2. BLOOD PRESSURE MEDICATION [Concomitant]
  3. GLUCOSAMINE [Concomitant]
  4. CALCIUM [Concomitant]
  5. MULTIVITAMIN [Concomitant]
  6. GLIPIZIDE [Concomitant]

REACTIONS (6)
  - BALANCE DISORDER [None]
  - CARDIAC STRESS TEST ABNORMAL [None]
  - HEPATIC ENZYME INCREASED [None]
  - NOCTURIA [None]
  - PANIC ATTACK [None]
  - WEIGHT DECREASED [None]
